FAERS Safety Report 5492296-2 (Version None)
Quarter: 2007Q4

REPORT INFORMATION
  Report Type: 
  Country: None (occurrence: None)
  Receive Date: 20071022
  Receipt Date: 20071019
  Transmission Date: 20080405
  Serious: Yes (Death, Life-Threatening, Hospitalization)
  Sender: FDA-Public Use
  Company Number: AU-SANOFI-SYNTHELABO-D01200707098

PATIENT
  Sex: Male
  Weight: 102 kg

DRUGS (5)
  1. PANAMAX [Concomitant]
  2. ZOCOR [Concomitant]
  3. TRAMADOL HCL [Concomitant]
  4. CLOPIDOGREL [Suspect]
     Indication: ATRIAL FIBRILLATION
     Route: 048
     Dates: start: 20050217
  5. ASPIRIN [Concomitant]
     Indication: ATRIAL FIBRILLATION
     Dosage: 100 MG
     Route: 048
     Dates: start: 20050217

REACTIONS (1)
  - AORTIC ANEURYSM RUPTURE [None]
